FAERS Safety Report 6905202-8 (Version None)
Quarter: 2010Q3

REPORT INFORMATION
  Report Type: 
  Country: None (occurrence: None)
  Receive Date: 20100804
  Receipt Date: 20100723
  Transmission Date: 20110219
  Serious: Yes (Other)
  Sender: FDA-Public Use
  Company Number: JP-JNJFOC-20100606338

PATIENT
  Age: 66 Year
  Sex: Male
  Weight: 57 kg

DRUGS (18)
  1. REMICADE [Suspect]
     Indication: RHEUMATOID ARTHRITIS
     Dosage: 20 INFUSIONS
     Route: 042
  2. REMICADE [Suspect]
     Dosage: 21ST
     Route: 042
  3. REMICADE [Suspect]
     Route: 042
  4. REMICADE [Suspect]
     Route: 042
  5. REMICADE [Suspect]
     Dosage: 25TH INFUSION
     Route: 042
  6. REMICADE [Suspect]
     Route: 042
  7. METHOTREXATE [Suspect]
     Indication: RHEUMATOID ARTHRITIS
     Route: 048
  8. PREDNISOLONE [Suspect]
     Indication: PRODUCT USED FOR UNKNOWN INDICATION
     Route: 048
  9. FOLIAMIN [Concomitant]
     Indication: PROPHYLAXIS
     Route: 048
  10. THYRADIN [Concomitant]
     Dosage: ^100RG^
     Route: 048
  11. ARTIST [Concomitant]
     Route: 048
  12. MOBIC [Concomitant]
     Indication: RHEUMATOID ARTHRITIS
     Route: 048
  13. FOSAMAC [Concomitant]
     Route: 048
  14. DIOVAN [Concomitant]
     Route: 048
  15. AMLODIPINE [Concomitant]
     Route: 048
  16. AMLODIPINE [Concomitant]
     Route: 048
  17. ETANERCEPT [Concomitant]
     Indication: RHEUMATOID ARTHRITIS
     Route: 058
  18. PREDONINE [Concomitant]
     Indication: PROPHYLAXIS
     Route: 042

REACTIONS (3)
  - DIFFUSE LARGE B-CELL LYMPHOMA [None]
  - EPSTEIN-BARR VIRUS INFECTION [None]
  - RETINAL HAEMORRHAGE [None]
